FAERS Safety Report 23889102 (Version 1)
Quarter: 2024Q2

REPORT INFORMATION
  Report Type: Report from Study
  Country: US (occurrence: US)
  Receive Date: 20240523
  Receipt Date: 20240523
  Transmission Date: 20240716
  Serious: No
  Sender: FDA-Public Use
  Company Number: US-APELLIS PHARMACEUTICALS-APL-2024-003835

PATIENT

DRUGS (1)
  1. PEGCETACOPLAN [Suspect]
     Active Substance: PEGCETACOPLAN
     Indication: Paroxysmal nocturnal haemoglobinuria
     Dosage: 1080 MILLIGRAM, TWICE WEEKLY (WEDNESDAYS AND SATURDAYS)
     Route: 058
     Dates: start: 20240110

REACTIONS (9)
  - Haemorrhoids [Unknown]
  - Fatigue [Unknown]
  - Headache [Unknown]
  - Injection site pain [Recovered/Resolved]
  - Diarrhoea [Recovering/Resolving]
  - Injection site swelling [Unknown]
  - Injection site induration [Unknown]
  - Weight increased [Unknown]
  - Skin discomfort [Unknown]

NARRATIVE: CASE EVENT DATE: 20240110
